FAERS Safety Report 7110430-5 (Version None)
Quarter: 2010Q4

REPORT INFORMATION
  Report Type: 
  Country: None (occurrence: None)
  Receive Date: 20101118
  Receipt Date: 20101110
  Transmission Date: 20110411
  Serious: Yes (Hospitalization, Other)
  Sender: FDA-Public Use
  Company Number: US-ASTRAZENECA-2010SE53535

PATIENT
  Age: 15 Year
  Sex: Female

DRUGS (5)
  1. QUETIAPINE [Suspect]
     Dosage: INGESTING UNKNOWN AMOUNTS
     Route: 048
  2. TRAZODONE HCL [Suspect]
     Dosage: INGESTING UNKNOWN AMOUNTS
     Route: 048
  3. CLONIDINE [Suspect]
     Route: 048
  4. RISPERIDONE [Suspect]
     Dosage: INGESTING UNKNOWN AMOUNTS
     Route: 048
  5. CAFFEINE [Concomitant]

REACTIONS (11)
  - BUNDLE BRANCH BLOCK LEFT [None]
  - DELIRIUM [None]
  - DEPRESSED LEVEL OF CONSCIOUSNESS [None]
  - ELECTROCARDIOGRAM QT PROLONGED [None]
  - HYPOTENSION [None]
  - LETHARGY [None]
  - MULTIPLE DRUG OVERDOSE [None]
  - TACHYCARDIA [None]
  - TEARFULNESS [None]
  - UNRESPONSIVE TO STIMULI [None]
  - WRONG DRUG ADMINISTERED [None]
